FAERS Safety Report 4893995-3 (Version None)
Quarter: 2006Q1

REPORT INFORMATION
  Report Type: 
  Country: None (occurrence: None)
  Receive Date: 20060127
  Receipt Date: 20050414
  Transmission Date: 20060701
  Serious: No
  Sender: FDA-Public Use
  Company Number: US-GLAXOSMITHKLINE-A0554308A

PATIENT
  Age: 51 Year
  Sex: Male
  Weight: 97.7 kg

DRUGS (6)
  1. WELLBUTRIN [Suspect]
     Indication: DRUG USE FOR UNKNOWN INDICATION
     Dosage: 150MG TWICE PER DAY
     Route: 048
     Dates: start: 20040601
  2. ASPIRIN [Concomitant]
     Dosage: 81MG PER DAY
     Route: 048
  3. ZANTAC 75 [Concomitant]
     Dosage: 2TAB PER DAY
     Route: 048
  4. CENTRUM SILVER [Concomitant]
     Route: 048
  5. B-12 [Concomitant]
     Route: 065
  6. VITAMIN E [Concomitant]
     Dosage: 300MG TWICE PER DAY
     Route: 048

REACTIONS (1)
  - LIBIDO INCREASED [None]
